FAERS Safety Report 4593055-5 (Version None)
Quarter: 2005Q1

REPORT INFORMATION
  Report Type: 
  Country: None (occurrence: None)
  Receive Date: 20050301
  Receipt Date: 20050217
  Transmission Date: 20050727
  Serious: Yes (Death, Hospitalization)
  Sender: FDA-Public Use
  Company Number: JP-JNJFOC-20040506501

PATIENT
  Sex: Female
  Weight: 41 kg

DRUGS (9)
  1. REMICADE [Suspect]
     Route: 041
     Dates: start: 20030529
  2. REMICADE [Suspect]
     Indication: FISTULA
     Dosage: 200 MG/DL WAS ADMINISTERED AT THE PATIENT'S SECOND ADMINISTRATION.
     Route: 041
     Dates: start: 20030529
  3. REMICADE [Suspect]
     Indication: CROHN'S DISEASE
     Dosage: 200 MG WAS ADMINISTERED AT THE PATIENT'S FIRST ADMINISTRATION.
     Route: 041
     Dates: start: 20030529
  4. PREDNISOLONE [Suspect]
     Indication: CROHN'S DISEASE
     Route: 042
  5. MEROPEN [Suspect]
     Indication: DRUG USE FOR UNKNOWN INDICATION
     Route: 042
     Dates: start: 20030601, end: 20030607
  6. PENTASA [Concomitant]
     Indication: CROHN'S DISEASE
     Route: 049
  7. VENOLIN GAMMA GLOBULIN [Concomitant]
     Route: 042
     Dates: start: 20030605, end: 20030610
  8. TPN [Concomitant]
  9. DENOSINE [Concomitant]
     Route: 042
     Dates: start: 20030605, end: 20030619

REACTIONS (11)
  - ABDOMINAL PAIN UPPER [None]
  - BILE DUCT STONE [None]
  - BLOOD PRESSURE DECREASED [None]
  - CHOLANGITIS [None]
  - CYTOMEGALOVIRUS INFECTION [None]
  - DRUG INEFFECTIVE [None]
  - INFUSION RELATED REACTION [None]
  - INTERSTITIAL LUNG DISEASE [None]
  - JAUNDICE CHOLESTATIC [None]
  - MELAENA [None]
  - SEPSIS [None]
